FAERS Safety Report 9350809 (Version 1)
Quarter: 2013Q2

REPORT INFORMATION
  Report Type: Report from Study
  Country: US (occurrence: US)
  Receive Date: 20130617
  Receipt Date: 20130617
  Transmission Date: 20140414
  Serious: Yes (Other)
  Sender: FDA-Public Use
  Company Number: US-ROCHE-1237596

PATIENT
  Sex: Female

DRUGS (1)
  1. AVASTIN [Suspect]
     Indication: BRAIN NEOPLASM MALIGNANT
     Route: 065

REACTIONS (12)
  - Neoplasm [Unknown]
  - Neoplasm [Unknown]
  - Diarrhoea [Unknown]
  - Abdominal pain [Unknown]
  - Nocturia [Unknown]
  - Hypoaesthesia [Unknown]
  - Balance disorder [Unknown]
  - Balance disorder [Unknown]
  - Weight increased [Unknown]
  - Increased appetite [Unknown]
  - Muscular weakness [Unknown]
  - Swelling face [Unknown]
